FAERS Safety Report 9342838 (Version 3)
Quarter: 2014Q1

REPORT INFORMATION
  Report Type: Spontaneous
  Country: US (occurrence: US)
  Receive Date: 20130611
  Receipt Date: 20140226
  Transmission Date: 20141002
  Serious: Yes (Hospitalization)
  Sender: FDA-Public Use
  Company Number: US-B.I. PHARMACEUTICALS,INC./RIDGEFIELD-2013-BI-16103BP

PATIENT
  Age: 86 Year
  Sex: Female
  Weight: 58.06 kg

DRUGS (11)
  1. PRADAXA [Suspect]
     Indication: ATRIAL FIBRILLATION
     Dosage: 150 MG
     Route: 048
     Dates: start: 201010, end: 20120229
  2. ASPIRIN [Suspect]
     Indication: PRODUCT USED FOR UNKNOWN INDICATION
     Route: 065
     Dates: end: 20120229
  3. LEVOTHYROXINE [Concomitant]
     Dosage: 88 MCG
     Route: 048
     Dates: start: 2004
  4. ISOSORBIDE [Concomitant]
     Route: 065
     Dates: start: 2004
  5. CARVEDILOL [Concomitant]
     Dosage: 25 MG
     Route: 048
     Dates: start: 2004
  6. DIGOXIN [Concomitant]
     Dosage: 0.125 MG
     Route: 048
     Dates: start: 2004
  7. LEVOCETIRIZINE [Concomitant]
     Dosage: 5 MG
     Route: 048
     Dates: start: 2004
  8. DONEPEZIL [Concomitant]
     Dosage: 5 MG
     Route: 048
  9. OMEPRAZOLE [Concomitant]
     Dosage: 20 MG
     Route: 048
  10. FEXOFENADINE [Concomitant]
     Route: 065
  11. LISINOPRIL [Concomitant]
     Dosage: 80 MG
     Route: 048

REACTIONS (3)
  - Gastrointestinal haemorrhage [Recovered/Resolved]
  - Respiratory failure [Unknown]
  - Syncope [Unknown]
